FAERS Safety Report 6039980-X (Version None)
Quarter: 2009Q1

REPORT INFORMATION
  Report Type: 
  Country: None (occurrence: None)
  Receive Date: 20090116
  Receipt Date: 20071107
  Transmission Date: 20090719
  Serious: No
  Sender: FDA-Public Use
  Company Number: US-BRISTOL-MYERS SQUIBB COMPANY-13973227

PATIENT
  Age: 40 Year
  Sex: Female
  Weight: 76 kg

DRUGS (6)
  1. ABILIFY [Suspect]
     Indication: BIPOLAR DISORDER
     Route: 048
     Dates: start: 19990101
  2. ABILIFY [Suspect]
     Indication: IMPULSE-CONTROL DISORDER
     Route: 048
     Dates: start: 19990101
  3. ALBUTEROL [Concomitant]
  4. FLOVENT [Concomitant]
  5. TYLENOL (CAPLET) [Concomitant]
  6. TRILEPTAL [Concomitant]

REACTIONS (7)
  - ASTHENIA [None]
  - CHEST PAIN [None]
  - DIARRHOEA [None]
  - DIZZINESS [None]
  - FALL [None]
  - HYPOTENSION [None]
  - TREMOR [None]
